FAERS Safety Report 16622412 (Version 1)
Quarter: 2019Q3

REPORT INFORMATION
  Report Type: Spontaneous
  Country: US (occurrence: US)
  Receive Date: 20190611
  Receipt Date: 20190611
  Transmission Date: 20191004
  Serious: No
  Sender: FDA-Public Use
  Company Number: None

PATIENT
  Age: 62 Year
  Sex: Female
  Weight: 90.72 kg

DRUGS (1)
  1. COSENTYX [Suspect]
     Active Substance: SECUKINUMAB
     Indication: PSORIASIS
     Dosage: ?          OTHER DOSE:INJECT 300MG (2 PEN;?
     Route: 058
     Dates: start: 201902

REACTIONS (4)
  - Chest pain [None]
  - Condition aggravated [None]
  - Fungal infection [None]
  - Cough [None]
